FAERS Safety Report 16284364 (Version 2)
Quarter: 2019Q2

REPORT INFORMATION
  Report Type: Report from Study
  Country: US (occurrence: US)
  Receive Date: 20190508
  Receipt Date: 20190610
  Transmission Date: 20190711
  Serious: Yes (Hospitalization, Other)
  Sender: FDA-Public Use
  Company Number: US-ALEXION PHARMACEUTICALS INC.-A201906707

PATIENT
  Sex: Female

DRUGS (1)
  1. SOLIRIS [Suspect]
     Active Substance: ECULIZUMAB
     Indication: PRODUCT USED FOR UNKNOWN INDICATION
     Route: 065

REACTIONS (8)
  - Eye contusion [Unknown]
  - Vision blurred [Unknown]
  - Myasthenia gravis crisis [Unknown]
  - Dental caries [Unknown]
  - Gait inability [Unknown]
  - Muscular weakness [Unknown]
  - Fall [Unknown]
  - Toothache [Unknown]

NARRATIVE: CASE EVENT DATE: 201903
